FAERS Safety Report 5322863-8 (Version None)
Quarter: 2007Q2

REPORT INFORMATION
  Report Type: 
  Country: None (occurrence: None)
  Receive Date: 20070511
  Receipt Date: 20070502
  Transmission Date: 20071010
  Serious: Yes (Other)
  Sender: FDA-Public Use
  Company Number: US-PFIZER INC-2007035773

PATIENT
  Sex: Female
  Weight: 50 kg

DRUGS (3)
  1. XALATAN [Suspect]
     Indication: GLAUCOMA
  2. FOSAMAX [Concomitant]
  3. VITAMIN CAP [Concomitant]

REACTIONS (1)
  - AORTIC VALVE ATRESIA [None]
